FAERS Safety Report 7671175-6 (Version None)
Quarter: 2011Q3

REPORT INFORMATION
  Report Type: 
  Country: None (occurrence: None)
  Receive Date: 20110809
  Receipt Date: 20110804
  Transmission Date: 20111222
  Serious: Yes (Hospitalization)
  Sender: FDA-Public Use
  Company Number: FR-EISAI INC-E2020-09545-SPO-FR

PATIENT
  Sex: Male

DRUGS (8)
  1. ZYPREXA [Suspect]
     Route: 048
     Dates: start: 20100404, end: 20100731
  2. ACETAMINOPHEN [Concomitant]
     Route: 048
  3. ARICEPT [Suspect]
     Route: 048
     Dates: start: 20100404, end: 20100731
  4. NITROGLYCERIN [Concomitant]
  5. SOTALOL HCL [Suspect]
     Dosage: 1/2 OF AN 80 MG TABLET DAILY
     Route: 048
     Dates: start: 20090901, end: 20100731
  6. ASPIRIN [Concomitant]
  7. FORLAX [Concomitant]
     Dosage: 4000 (UNITS NOT SPECIFIED)
  8. ALPRAZOLAM [Concomitant]
     Route: 048

REACTIONS (1)
  - ELECTROCARDIOGRAM QT PROLONGED [None]
